FAERS Safety Report 5856104-X (Version None)
Quarter: 2008Q3

REPORT INFORMATION
  Report Type: 
  Country: None (occurrence: None)
  Receive Date: 20080825
  Receipt Date: 20080819
  Transmission Date: 20090109
  Serious: Yes (Hospitalization)
  Sender: FDA-Public Use
  Company Number: GB-BAYER-200811981BNE

PATIENT
  Age: 42 Year
  Sex: Female
  Weight: 58 kg

DRUGS (23)
  1. SORAFENIB [Suspect]
     Indication: DRUG USE FOR UNKNOWN INDICATION
     Dosage: TOTAL DAILY DOSE: 800 MG
     Route: 048
     Dates: start: 20080207, end: 20080306
  2. SORAFENIB [Suspect]
     Dosage: TOTAL DAILY DOSE: 1200 MG
     Route: 048
     Dates: start: 20080307, end: 20080403
  3. SORAFENIB [Suspect]
     Dosage: TOTAL DAILY DOSE: 1600 MG
     Route: 048
     Dates: start: 20080404, end: 20080430
  4. SORAFENIB [Suspect]
     Dosage: TOTAL DAILY DOSE: 1600 MG
     Route: 048
     Dates: start: 20080529, end: 20080610
  5. SORAFENIB [Suspect]
     Dosage: TOTAL DAILY DOSE: 1600 MG
     Route: 048
     Dates: start: 20080626
  6. SORAFENIB [Suspect]
     Route: 048
     Dates: start: 20080806
  7. SORAFENIB [Suspect]
     Dosage: TOTAL DAILY DOSE: 1600 MG
     Route: 048
     Dates: start: 20080612, end: 20080625
  8. SORAFENIB [Suspect]
     Dosage: TOTAL DAILY DOSE: 1600 MG
     Route: 048
     Dates: start: 20080501, end: 20080528
  9. METOCLOPRAMIDE [Concomitant]
     Indication: DRUG USE FOR UNKNOWN INDICATION
  10. CALOGEN [Concomitant]
     Indication: DRUG USE FOR UNKNOWN INDICATION
  11. MAXIJUICE [Concomitant]
     Indication: DRUG USE FOR UNKNOWN INDICATION
  12. ACETAMINOPHEN [Concomitant]
     Indication: DRUG USE FOR UNKNOWN INDICATION
  13. MOTTILLIUM [Concomitant]
     Indication: DRUG USE FOR UNKNOWN INDICATION
  14. IMODIUM [Concomitant]
     Indication: DRUG USE FOR UNKNOWN INDICATION
  15. CHLORPHENIRAMINE MALEATE [Concomitant]
     Indication: DRUG USE FOR UNKNOWN INDICATION
  16. E45 [Concomitant]
     Indication: DRUG USE FOR UNKNOWN INDICATION
  17. BENDROFLUROZIDE [Concomitant]
     Indication: DRUG USE FOR UNKNOWN INDICATION
  18. CYCLIZINE [Concomitant]
     Indication: DRUG USE FOR UNKNOWN INDICATION
  19. TINZAPARIN [Concomitant]
     Indication: DRUG USE FOR UNKNOWN INDICATION
  20. OILATIUM [Concomitant]
     Indication: DRUG USE FOR UNKNOWN INDICATION
  21. POLYTAR [Concomitant]
     Indication: DRUG USE FOR UNKNOWN INDICATION
  22. MAGNESIUM SULFATE [Concomitant]
     Indication: DRUG USE FOR UNKNOWN INDICATION
  23. CACICHEW [Concomitant]
     Indication: DRUG USE FOR UNKNOWN INDICATION

REACTIONS (3)
  - HYPOCALCAEMIA [None]
  - HYPOPHOSPHATAEMIA [None]
  - PALMAR-PLANTAR ERYTHRODYSAESTHESIA SYNDROME [None]
